FAERS Safety Report 17407461 (Version 1)
Quarter: 2020Q1

REPORT INFORMATION
  Report Type: Report from Study
  Country: US (occurrence: US)
  Receive Date: 20200212
  Receipt Date: 20200212
  Transmission Date: 20200409
  Serious: Yes (Other)
  Sender: FDA-Public Use
  Company Number: US-KYOWAKIRIN-2020BKK001847

PATIENT

DRUGS (1)
  1. NOURIANZ [Suspect]
     Active Substance: ISTRADEFYLLINE
     Indication: PRODUCT USED FOR UNKNOWN INDICATION
     Dosage: HALF OF 20 MG
     Route: 065

REACTIONS (4)
  - Screaming [Unknown]
  - Insomnia [Unknown]
  - Wrong technique in product usage process [Unknown]
  - Parkinson^s disease [Unknown]
